FAERS Safety Report 24048695 (Version 1)
Quarter: 2024Q3

REPORT INFORMATION
  Report Type: Spontaneous
  Country: BE (occurrence: BE)
  Receive Date: 20240704
  Receipt Date: 20240704
  Transmission Date: 20241016
  Serious: Yes (Hospitalization)
  Sender: ACCORD
  Company Number: BE-Accord-432894

PATIENT
  Age: 75 Year
  Sex: Male

DRUGS (3)
  1. METHOTREXATE [Suspect]
     Active Substance: METHOTREXATE
     Indication: Polymyalgia rheumatica
  2. CYCLOSPORINE [Suspect]
     Active Substance: CYCLOSPORINE
     Indication: Amegakaryocytic thrombocytopenia
     Dosage: MORE THAN 10 YEARS AGO
  3. METHYLPREDNISOLONE [Suspect]
     Active Substance: METHYLPREDNISOLONE
     Indication: Polymyalgia rheumatica

REACTIONS (5)
  - Cerebral nocardiosis [Recovering/Resolving]
  - Spinal cord abscess [Recovering/Resolving]
  - Scrotal abscess [Recovering/Resolving]
  - Nocardiosis [Recovering/Resolving]
  - Orchitis [Recovering/Resolving]
